FAERS Safety Report 5800584-2 (Version None)
Quarter: 2008Q3

REPORT INFORMATION
  Report Type: 
  Country: None (occurrence: None)
  Receive Date: 20080702
  Receipt Date: 20080702
  Transmission Date: 20090109
  Serious: Yes (Hospitalization)
  Sender: FDA-Public Use
  Company Number: None

PATIENT
  Sex: Female
  Weight: 84.5 kg

DRUGS (11)
  1. CLOFARABINE/CAMPAT [Suspect]
     Indication: STEM CELL TRANSPLANT
     Dosage: 88/20 ONCE A DAY IV DRIP
     Route: 041
     Dates: start: 20080410, end: 20080414
  2. MELPHALAN. [Suspect]
     Dosage: 308 ONCE IV DRIP
     Route: 041
     Dates: start: 20080415, end: 20080415
  3. ACYCLOVIR [Concomitant]
  4. ATENOLOL [Concomitant]
  5. AMITRIPTILENE [Concomitant]
  6. ZOLOFT [Concomitant]
  7. VORICONAZOLE [Concomitant]
  8. BACTRUM [Concomitant]
  9. PREDNISONE TAB [Concomitant]
  10. PROGRAF [Concomitant]
  11. NEXIUM [Concomitant]

REACTIONS (1)
  - ABDOMINAL PAIN [None]
